FAERS Safety Report 6676581-4 (Version None)
Quarter: 2010Q2

REPORT INFORMATION
  Report Type: 
  Country: None (occurrence: None)
  Receive Date: 20100412
  Receipt Date: 20090727
  Transmission Date: 20101027
  Serious: No
  Sender: FDA-Public Use
  Company Number: US-ABBOTT-09P-163-0588202-00

PATIENT
  Sex: Female

DRUGS (2)
  1. LUPRON [Suspect]
     Indication: IN VITRO FERTILISATION
     Route: 058
     Dates: start: 20090706, end: 20090723
  2. FOLLISTEM [Concomitant]
     Indication: IN VITRO FERTILISATION

REACTIONS (2)
  - ASTHENIA [None]
  - PARAESTHESIA [None]
